FAERS Safety Report 23594324 (Version 1)
Quarter: 2024Q1

REPORT INFORMATION
  Report Type: Other
  Country: JP (occurrence: None)
  Receive Date: 20240305
  Receipt Date: 20240305
  Transmission Date: 20240410
  Serious: Yes (Other)
  Sender: FDA-Public Use
  Company Number: JP-ROCHE-3517695

PATIENT

DRUGS (6)
  1. RITUXIMAB [Suspect]
     Active Substance: RITUXIMAB
     Indication: Prophylaxis against transplant rejection
     Dosage: 200 MG PER PERSON PREOPERATIVELY
     Route: 042
  2. MYCOPHENOLATE MOFETIL [Suspect]
     Active Substance: MYCOPHENOLATE MOFETIL
     Indication: Prophylaxis against transplant rejection
     Dosage: INITIATED 7 DAYS BEFORE LDKT AT A DOSE OF 2000 MG/D AND THE DOSE WAS REDUCED TO 1000-1500 MG/D 1 MO
     Route: 065
  3. TACROLIMUS [Suspect]
     Active Substance: TACROLIMUS
     Indication: Prophylaxis against transplant rejection
     Dosage: INITIATED 7 DAYS BEFORE LDKT AT 0.10 MG/KG/D-TAC BID GROUP. THE DOSE WAS ADJUSTED TO MAINTAIN A TROU
     Route: 065
  4. TACROLIMUS [Suspect]
     Active Substance: TACROLIMUS
     Dosage: INITIATED 7 DAYS BEFORE LDKT AT 0.10 MG/KG/D- TAC-QD GROUP. THE DOSE WAS ADJUSTED TO MAINTAIN A TROU
     Route: 065
  5. METHYLPREDNISOLONE [Suspect]
     Active Substance: METHYLPREDNISOLONE
     Indication: Prophylaxis against transplant rejection
     Dosage: 20 MG/D FOR 7 DAYS BEFORE LDKT. INCREASED TO 500 MG/D, THEN TAPERED TO 6-8 MG/D WITHIN 1-2 MONTHS AF
     Route: 065
  6. BASILIXIMAB [Suspect]
     Active Substance: BASILIXIMAB
     Indication: Prophylaxis against transplant rejection
     Dosage: 20 MG/D AT THE TIME OF SURGERY AND ON POSTOPERATIVE DAY 4
     Route: 065

REACTIONS (3)
  - Neoplasm malignant [Unknown]
  - Polyomavirus-associated nephropathy [Unknown]
  - Cytomegalovirus infection [Unknown]
